FAERS Safety Report 23381496 (Version 1)
Quarter: 2024Q1

REPORT INFORMATION
  Report Type: Spontaneous
  Country: CH (occurrence: CH)
  Receive Date: 20240109
  Receipt Date: 20240109
  Transmission Date: 20240410
  Serious: Yes (Hospitalization, Other)
  Sender: FDA-Public Use
  Company Number: None

PATIENT
  Age: 78 Year
  Sex: Female

DRUGS (6)
  1. ARAVA [Suspect]
     Active Substance: LEFLUNOMIDE
     Indication: Rheumatoid arthritis
     Dosage: 10 MG (10 MG N/A DOSE EVERY 1 DAY) 9INGREDIENT (LEFLUNOMIDE): 10MG; ADDITIONAL INFO: ; ROUTE:048)
     Route: 048
     Dates: start: 202106, end: 202201
  2. IMRALDI [Suspect]
     Active Substance: ADALIMUMAB
     Dosage: 40 MG (40 MG N/A DOSE EVERY 2 WEEKS)
     Route: 058
     Dates: start: 20230929, end: 202310
  3. IMRALDI [Suspect]
     Active Substance: ADALIMUMAB
     Indication: Rheumatoid arthritis
     Dosage: 40 MG 940 MG N/A DOSE EVERY 2 WEEKS)
     Route: 058
     Dates: start: 202110, end: 20230809
  4. METHOTREXATE [Suspect]
     Active Substance: METHOTREXATE
     Indication: Rheumatoid arthritis
     Dosage: UNK
     Route: 065
     Dates: start: 2019, end: 2020
  5. METHOTREXATE [Suspect]
     Active Substance: METHOTREXATE
     Dosage: UNK
     Route: 065
  6. RIMSTAR [Suspect]
     Active Substance: ETHAMBUTOL\ISONIAZID\PYRAZINAMIDE\RIFAMYCIN
     Indication: Disseminated tuberculosis
     Dosage: 1 DF 91 KP_C N/A DOSE EVERY 1 DAY)
     Route: 048
     Dates: start: 20231018, end: 20231026

REACTIONS (2)
  - Disseminated tuberculosis [Not Recovered/Not Resolved]
  - Cholestasis [Not Recovered/Not Resolved]

NARRATIVE: CASE EVENT DATE: 20231018
